FAERS Safety Report 6665549-X (Version None)
Quarter: 2010Q2

REPORT INFORMATION
  Report Type: 
  Country: None (occurrence: None)
  Receive Date: 20100402
  Receipt Date: 20100325
  Transmission Date: 20101027
  Serious: Yes (Hospitalization, Other)
  Sender: FDA-Public Use
  Company Number: GB-ABBOTT-10P-167-0620815-00

PATIENT
  Sex: Female

DRUGS (13)
  1. HUMIRA [Suspect]
     Indication: RHEUMATOID ARTHRITIS
     Route: 058
     Dates: start: 20040922
  2. HYDROXYCHLOROQUINE SULFATE [Concomitant]
     Indication: RHEUMATOID ARTHRITIS
  3. METHOTREXATE [Concomitant]
     Indication: RHEUMATOID ARTHRITIS
     Route: 058
  4. SULPHASALAZINE [Concomitant]
     Indication: RHEUMATOID ARTHRITIS
  5. AMITRIPTYLINE HYDROCHLORIDE [Concomitant]
     Indication: DRUG USE FOR UNKNOWN INDICATION
     Dosage: BASELINE MEDICATION AT 14-OCT-2004
     Dates: start: 20041014
  6. ATENOLOL [Concomitant]
     Indication: DRUG USE FOR UNKNOWN INDICATION
     Dosage: BASELINE MEDICATION AT 14-OCT-2004
     Dates: start: 20041014
  7. CELECOXIB [Concomitant]
     Indication: DRUG USE FOR UNKNOWN INDICATION
     Dates: start: 20041014
  8. CLONIDINE [Concomitant]
     Indication: DRUG USE FOR UNKNOWN INDICATION
     Dosage: BASELINE MEDICATION AT 14-OCT-2004
     Dates: start: 20041014
  9. ACETAMINOPHEN AND CODEINE PHOSPHATE [Concomitant]
     Indication: DRUG USE FOR UNKNOWN INDICATION
     Dosage: BASELINE MEDICATION AT 14-OCT-2004
     Dates: start: 20041014
  10. DIHYDROCODEINE BITARTRATE INJ [Concomitant]
     Indication: DRUG USE FOR UNKNOWN INDICATION
     Dosage: BASELINE MEDICATION AT 14-OCT-2004
     Dates: start: 20041014
  11. FOLIC ACID [Concomitant]
     Indication: DRUG USE FOR UNKNOWN INDICATION
     Dates: start: 20041014
  12. SULPHADIAZINE [Concomitant]
     Indication: DRUG USE FOR UNKNOWN INDICATION
     Dosage: BASELINE MEDICATION AT 14-OCT-2004
     Dates: start: 20041014
  13. VENLAFAXINE [Concomitant]
     Indication: DRUG USE FOR UNKNOWN INDICATION
     Dosage: BASELINE MEDICATION AT 14-OCT-2004
     Dates: start: 20041014

REACTIONS (1)
  - CHOLECYSTITIS ACUTE [None]
